FAERS Safety Report 9885293 (Version 1)
Quarter: 2014Q1

REPORT INFORMATION
  Report Type: Spontaneous
  Country: US (occurrence: None)
  Receive Date: 20140207
  Receipt Date: 20140207
  Transmission Date: 20141002
  Serious: Yes (Other)
  Sender: FDA-Public Use
  Company Number: None

PATIENT
  Age: 56 Year
  Sex: Male
  Weight: 65.5 kg

DRUGS (1)
  1. RITUXAN [Suspect]
     Route: 042
     Dates: start: 20131104, end: 20131202

REACTIONS (6)
  - Arthralgia [None]
  - Joint swelling [None]
  - Poor quality sleep [None]
  - Pain [None]
  - Drug ineffective [None]
  - Serum sickness [None]
